FAERS Safety Report 7330780-7 (Version None)
Quarter: 2011Q1

REPORT INFORMATION
  Report Type: 
  Country: None (occurrence: None)
  Receive Date: 20110304
  Receipt Date: 20110228
  Transmission Date: 20110831
  Serious: Yes (Other)
  Sender: FDA-Public Use
  Company Number: US-PFIZER INC-2011043690

PATIENT
  Sex: Male
  Weight: 73 kg

DRUGS (6)
  1. AMIODARONE [Concomitant]
     Dosage: 100 MG, 4X/WEEK
     Route: 048
  2. WARFARIN SODIUM [Concomitant]
     Dosage: UNK
  3. DOXAZOSIN MESYLATE [Suspect]
     Indication: BLOOD PRESSURE
     Dosage: 2 MG, UNK
  4. LIPITOR [Concomitant]
     Dosage: 40 MG, 1X/DAY
     Route: 048
  5. DOXAZOSIN MESYLATE [Suspect]
     Indication: BENIGN PROSTATIC HYPERPLASIA
     Dosage: 3 MG, UNK
     Route: 048
     Dates: start: 20100801
  6. ATENOLOL [Concomitant]
     Dosage: UNK

REACTIONS (1)
  - PLATELET COUNT DECREASED [None]
